FAERS Safety Report 13142153 (Version 2)
Quarter: 2017Q1

REPORT INFORMATION
  Report Type: Spontaneous
  Country: US (occurrence: US)
  Receive Date: 20170123
  Receipt Date: 20170201
  Transmission Date: 20170428
  Serious: Yes (Death)
  Sender: FDA-Public Use
  Company Number: US-PFIZER INC-2017026234

PATIENT
  Age: 54 Year
  Sex: Male

DRUGS (1)
  1. AMIODARONE HCL [Suspect]
     Active Substance: AMIODARONE HYDROCHLORIDE
     Dosage: UNK
     Route: 051

REACTIONS (2)
  - Death [Fatal]
  - Medication error [Fatal]

NARRATIVE: CASE EVENT DATE: 2015
